FAERS Safety Report 21233023 (Version 1)
Quarter: 2022Q3

REPORT INFORMATION
  Report Type: Spontaneous
  Country: GB (occurrence: GB)
  Receive Date: 20220819
  Receipt Date: 20220819
  Transmission Date: 20221027
  Serious: Yes (Other)
  Sender: FDA-Public Use
  Company Number: GB-TORRENT-00028782

PATIENT

DRUGS (1)
  1. RISPERIDONE [Suspect]
     Active Substance: RISPERIDONE
     Indication: Product used for unknown indication
     Dosage: UNKNOWN; INGREDIENT (RISPERIDONE): 1MG;STRENGTH ; 1 MG
     Route: 065

REACTIONS (3)
  - Mental impairment [Unknown]
  - Fatigue [Unknown]
  - Communication disorder [Unknown]
